FAERS Safety Report 9924863 (Version 1)
Quarter: 2014Q1

REPORT INFORMATION
  Report Type: Spontaneous
  Country: FR (occurrence: FR)
  Receive Date: 20140226
  Receipt Date: 20140226
  Transmission Date: 20141002
  Serious: Yes (Hospitalization)
  Sender: FDA-Public Use
  Company Number: FR-ASTRAZENECA-2014SE11848

PATIENT
  Age: 17159 Day
  Sex: Female

DRUGS (6)
  1. XEROQUEL [Suspect]
     Route: 048
     Dates: start: 201205
  2. ALFUZOSINE [Suspect]
     Route: 048
     Dates: start: 201203
  3. ANAFRANIL [Suspect]
     Route: 048
     Dates: start: 201007
  4. NOZINAN [Suspect]
     Route: 048
     Dates: start: 201007
  5. LOXAPAC [Suspect]
     Route: 048
     Dates: start: 201211
  6. PARKINANE [Suspect]
     Route: 048
     Dates: start: 201211

REACTIONS (1)
  - Pulmonary embolism [Recovered/Resolved]
